FAERS Safety Report 12442556 (Version 1)
Quarter: 2016Q2

REPORT INFORMATION
  Report Type: Spontaneous
  Country: US (occurrence: None)
  Receive Date: 20160606
  Receipt Date: 20160606
  Transmission Date: 20160815
  Serious: No
  Sender: FDA-Public Use
  Company Number: None

PATIENT
  Age: 63 Year
  Sex: Female
  Weight: 86.18 kg

DRUGS (7)
  1. PROBIOTIC [Concomitant]
     Active Substance: PROBIOTICS NOS
  2. DAILY VITAMIN [Concomitant]
     Active Substance: VITAMINS
  3. LOSARTAN. [Concomitant]
     Active Substance: LOSARTAN
  4. OMEGA-3 ACIDS [Concomitant]
     Active Substance: OMEGA-3 FATTY ACIDS
  5. DEXTROMAP - AMPHETAMIN 10MG BARR [Suspect]
     Active Substance: AMPHETAMINE ASPARTATE\AMPHETAMINE SULFATE\DEXTROAMPHETAMINE SACCHARATE\DEXTROAMPHETAMINE SULFATE
     Indication: ATTENTION DEFICIT/HYPERACTIVITY DISORDER
     Route: 048
     Dates: start: 20160519, end: 20160601
  6. IBUPROPHEN [Concomitant]
     Active Substance: IBUPROFEN
  7. FLUROXTINE [Concomitant]

REACTIONS (5)
  - Product substitution issue [None]
  - Abdominal pain upper [None]
  - Constipation [None]
  - Product lot number issue [None]
  - Headache [None]

NARRATIVE: CASE EVENT DATE: 20160520
